FAERS Safety Report 21891941 (Version 2)
Quarter: 2023Q1

REPORT INFORMATION
  Report Type: Spontaneous
  Country: US (occurrence: US)
  Receive Date: 20230120
  Receipt Date: 20230227
  Transmission Date: 20230417
  Serious: Yes (Other)
  Sender: FDA-Public Use
  Company Number: US-BAYER-2023A008103

PATIENT
  Age: 32 Year
  Sex: Female
  Weight: 75.283 kg

DRUGS (1)
  1. MIRENA [Suspect]
     Active Substance: LEVONORGESTREL
     Indication: Contraception
     Dosage: 20?G/DAY
     Route: 015
     Dates: start: 20221117, end: 20230116

REACTIONS (2)
  - Uterine perforation [Recovered/Resolved]
  - Device use issue [None]

NARRATIVE: CASE EVENT DATE: 20221117
